FAERS Safety Report 15705737 (Version 6)
Quarter: 2020Q3

REPORT INFORMATION
  Report Type: Spontaneous
  Country: PT (occurrence: PT)
  Receive Date: 20181210
  Receipt Date: 20200110
  Transmission Date: 20201104
  Serious: Yes (Life-Threatening, Hospitalization, Other)
  Sender: FDA-Public Use
  Company Number: PT-UCBSA-2018053578

PATIENT
  Age: 47 Year
  Sex: Female

DRUGS (6)
  1. XYZAL [Suspect]
     Active Substance: LEVOCETIRIZINE DIHYDROCHLORIDE
     Indication: RASH PRURITIC
     Dosage: UNK
  2. ACEMETACIN [Suspect]
     Active Substance: ACEMETACIN
     Indication: ARTHRALGIA
     Dosage: UNK
  3. CEFTRIAXONE. [Suspect]
     Active Substance: CEFTRIAXONE
     Indication: EVIDENCE BASED TREATMENT
     Dosage: UNK
  4. DEFLAZACORT [Suspect]
     Active Substance: DEFLAZACORT
     Indication: RASH PRURITIC
     Dosage: UNK
  5. ETORICOXIB. [Suspect]
     Active Substance: ETORICOXIB
     Indication: ARTHRALGIA
     Dosage: 2 MG, 2X/DAY (BID)
  6. ETORICOXIB. [Suspect]
     Active Substance: ETORICOXIB
     Indication: PAIN IN EXTREMITY

REACTIONS (1)
  - Toxic epidermal necrolysis [Unknown]
